FAERS Safety Report 16943350 (Version 1)
Quarter: 2019Q4

REPORT INFORMATION
  Report Type: Spontaneous
  Country: CA (occurrence: CA)
  Receive Date: 20191022
  Receipt Date: 20191022
  Transmission Date: 20200122
  Serious: Yes (Life-Threatening, Other)
  Sender: FDA-Public Use
  Company Number: CA-AUROBINDO-AUR-APL-2019-067676

PATIENT
  Age: 15 Month
  Sex: Male

DRUGS (1)
  1. AMOXICILLIN. [Suspect]
     Active Substance: AMOXICILLIN
     Indication: PNEUMONIA
     Dosage: UNK
     Route: 048

REACTIONS (4)
  - Dyspnoea [Recovered/Resolved]
  - Depressed level of consciousness [Recovered/Resolved]
  - Rash maculo-papular [Recovered/Resolved]
  - Oxygen saturation decreased [Recovered/Resolved]
